FAERS Safety Report 7015653-1 (Version None)
Quarter: 2010Q3

REPORT INFORMATION
  Report Type: 
  Country: None (occurrence: None)
  Receive Date: 20100927
  Receipt Date: 20100920
  Transmission Date: 20110219
  Serious: No
  Sender: FDA-Public Use
  Company Number: US-B.I. PHARMACEUTICALS,INC./RIDGEFIELD-2010-BP-10685BP

PATIENT
  Sex: Female

DRUGS (2)
  1. SPIRIVA [Suspect]
     Indication: ASTHMA
     Dosage: 18 MCG
     Route: 055
     Dates: start: 20050101
  2. TOPROL-XL [Concomitant]
     Indication: CARDIAC DISORDER

REACTIONS (6)
  - ASTHMA [None]
  - BACK PAIN [None]
  - GASTRIC ULCER [None]
  - MUSCLE STRAIN [None]
  - PAIN [None]
  - ROAD TRAFFIC ACCIDENT [None]
